FAERS Safety Report 25628698 (Version 1)
Quarter: 2025Q3

REPORT INFORMATION
  Report Type: Spontaneous
  Country: EU (occurrence: EU)
  Receive Date: 20250731
  Receipt Date: 20250731
  Transmission Date: 20251020
  Serious: Yes (Other)
  Sender: TEVA
  Company Number: EU-TEVA-VS-3356784

PATIENT
  Age: 40 Year
  Sex: Female

DRUGS (1)
  1. LISDEXAMFETAMINE [Suspect]
     Active Substance: LISDEXAMFETAMINE
     Indication: Attention deficit hyperactivity disorder
     Dosage: DAILY DOSE: 20 MG, RATIOPHARM 20 MG HARTKAPSELN
     Route: 048
     Dates: start: 202507, end: 202507

REACTIONS (10)
  - Panic attack [Unknown]
  - Restlessness [Unknown]
  - Disturbance in attention [Unknown]
  - Product taste abnormal [Unknown]
  - Hyperhidrosis [Unknown]
  - Agitation [Unknown]
  - Therapeutic product effect decreased [Unknown]
  - Feeling abnormal [Unknown]
  - Product solubility abnormal [Unknown]
  - Product physical issue [Unknown]

NARRATIVE: CASE EVENT DATE: 20250701
